FAERS Safety Report 5261921-3 (Version None)
Quarter: 2007Q1

REPORT INFORMATION
  Report Type: 
  Country: None (occurrence: None)
  Receive Date: 20070308
  Receipt Date: 20070216
  Transmission Date: 20070707
  Serious: Yes (Hospitalization)
  Sender: FDA-Public Use
  Company Number: 163-21880-07011284

PATIENT
  Age: 58 Year
  Sex: Male

DRUGS (6)
  1. REVLIMID [Suspect]
     Indication: MULTIPLE MYELOMA
     Dosage: 1 IN 1 D, ORAL
     Route: 048
     Dates: start: 20070112, end: 20070119
  2. DEXAMETHASONE TAB [Suspect]
     Indication: MULTIPLE MYELOMA
     Dosage: 4 DAYS ON AND 4 DAYS OFF
     Dates: start: 20070114
  3. TOPROL (METOPROOL SUCCINATE) [Concomitant]
  4. NORVASC (AMOLODIPINE BESILATE) [Concomitant]
  5. FOSINOPRIL SODIUM [Concomitant]
  6. NPH PURIFIED PORK ISOPHANE INSULIN [Concomitant]

REACTIONS (7)
  - ALANINE AMINOTRANSFERASE INCREASED [None]
  - ASPARTATE AMINOTRANSFERASE INCREASED [None]
  - BILIRUBIN CONJUGATED INCREASED [None]
  - BLOOD ALKALINE PHOSPHATASE INCREASED [None]
  - BLOOD BILIRUBIN INCREASED [None]
  - HEPATIC FUNCTION ABNORMAL [None]
  - HEPATOMEGALY [None]
